FAERS Safety Report 15803261 (Version 1)
Quarter: 2019Q1

REPORT INFORMATION
  Report Type: Spontaneous
  Country: US (occurrence: US)
  Receive Date: 20190109
  Receipt Date: 20190109
  Transmission Date: 20190417
  Serious: No
  Sender: FDA-Public Use
  Company Number: US-009507513-1901USA000296

PATIENT
  Age: 68 Year
  Sex: Male
  Weight: 79.4 kg

DRUGS (6)
  1. AMANTADINE. [Suspect]
     Active Substance: AMANTADINE HYDROCHLORIDE
     Dosage: 274MG ONCE DAILY AT BEDTIME
     Route: 048
     Dates: start: 20180507, end: 201808
  2. AMANTADINE. [Suspect]
     Active Substance: AMANTADINE HYDROCHLORIDE
     Indication: DYSKINESIA
     Dosage: UNK UNK, QD AT BEDTIME
     Route: 048
     Dates: start: 20180430, end: 20180506
  3. CARBIDOPA (+) LEVODOPA [Concomitant]
     Active Substance: CARBIDOPA\LEVODOPA
  4. AMANTADINE. [Suspect]
     Active Substance: AMANTADINE HYDROCHLORIDE
     Dosage: 274MG ONCE DAILY AT BEDTIMEUNK
     Route: 048
     Dates: start: 2018
  5. ENTACAPONE. [Concomitant]
     Active Substance: ENTACAPONE
  6. SINEMET [Suspect]
     Active Substance: CARBIDOPA\LEVODOPA
     Dosage: 3 DOSAGE FORM
     Route: 048
     Dates: start: 201811, end: 201811

REACTIONS (4)
  - Nausea [Unknown]
  - Vomiting [Unknown]
  - Pruritus [Recovered/Resolved]
  - Erythema [Recovered/Resolved]

NARRATIVE: CASE EVENT DATE: 201811
